FAERS Safety Report 7222035-6 (Version None)
Quarter: 2011Q1

REPORT INFORMATION
  Report Type: 
  Country: None (occurrence: None)
  Receive Date: 20110112
  Receipt Date: 20101231
  Transmission Date: 20110831
  Serious: Yes (Hospitalization, Other)
  Sender: FDA-Public Use
  Company Number: PHHY2010GB89641

PATIENT

DRUGS (3)
  1. LORATADINE [Concomitant]
     Dosage: 10 MG, QD
  2. FLUOXETINE [Concomitant]
     Dosage: 40 MG, QD
  3. PARACETAMOL [Suspect]
     Dosage: OVERDOSE OF 25G (50 DF OF 500MG TABLETS)
     Route: 048

REACTIONS (9)
  - VENTRICULAR FIBRILLATION [None]
  - ELECTROCARDIOGRAM QT PROLONGED [None]
  - HYPOKALAEMIA [None]
  - VENTRICULAR TACHYCARDIA [None]
  - ALCOHOL WITHDRAWAL SYNDROME [None]
  - OVERDOSE [None]
  - HYPOMAGNESAEMIA [None]
  - CARDIAC ARREST [None]
  - TORSADE DE POINTES [None]
